FAERS Safety Report 11768570 (Version 1)
Quarter: 2015Q4

REPORT INFORMATION
  Report Type: Spontaneous
  Country: IN (occurrence: IN)
  Receive Date: 20151123
  Receipt Date: 20151123
  Transmission Date: 20160304
  Serious: Yes (Other)
  Sender: FDA-Public Use
  Company Number: IN-MYLANLABS-2015M1040815

PATIENT

DRUGS (1)
  1. METHOTREXATE [Suspect]
     Active Substance: METHOTREXATE
     Indication: OCULAR LYMPHOMA
     Dosage: NINE INTRAVITREAL INJECTIONS (400MCG/0.1ML) OVER 15 MONTHS AND TWO FURTHER INTRAVITREAL INJECTIONS.
     Route: 050

REACTIONS (1)
  - Drug resistance [Unknown]
